FAERS Safety Report 8143362-4 (Version None)
Quarter: 2012Q1

REPORT INFORMATION
  Report Type: 
  Country: None (occurrence: None)
  Receive Date: 20120217
  Receipt Date: 20120206
  Transmission Date: 20120608
  Serious: Yes (Other)
  Sender: FDA-Public Use
  Company Number: AU-JNJFOC-20110910063

PATIENT
  Sex: Female

DRUGS (5)
  1. REMICADE [Suspect]
     Indication: CROHN'S DISEASE
     Route: 042
  2. REMICADE [Suspect]
     Route: 042
     Dates: start: 20110915
  3. REMICADE [Suspect]
     Route: 042
     Dates: start: 20111101, end: 20111101
  4. IMURAN [Concomitant]
  5. PREDNISOLONE [Concomitant]

REACTIONS (2)
  - CROHN'S DISEASE [None]
  - PYODERMA GANGRENOSUM [None]
